FAERS Safety Report 12663819 (Version 1)
Quarter: 2016Q3

REPORT INFORMATION
  Report Type: Spontaneous
  Country: FR (occurrence: FR)
  Receive Date: 20160818
  Receipt Date: 20160818
  Transmission Date: 20161109
  Serious: Yes (Hospitalization)
  Sender: FDA-Public Use
  Company Number: FR-EISAI MEDICAL RESEARCH-EC-2016-019517

PATIENT
  Age: 76 Year
  Sex: Female

DRUGS (4)
  1. OXYNORMORO [Suspect]
     Active Substance: OXYCODONE
     Indication: PAIN
     Route: 048
     Dates: end: 201606
  2. HALAVEN [Suspect]
     Active Substance: ERIBULIN MESYLATE
     Indication: ENDOMETRIAL ADENOCARCINOMA
     Route: 041
     Dates: start: 20160510, end: 20160524
  3. NEURONTIN [Concomitant]
     Active Substance: GABAPENTIN
     Indication: PAIN
     Dosage: 500 MG
     Route: 048
     Dates: end: 201606
  4. OXYCONTIN [Suspect]
     Active Substance: OXYCODONE HYDROCHLORIDE
     Indication: PAIN
     Dosage: 25 MG
     Route: 048
     Dates: end: 201606

REACTIONS (2)
  - Ataxia [Recovered/Resolved]
  - Balance disorder [Recovered/Resolved]

NARRATIVE: CASE EVENT DATE: 201605
